FAERS Safety Report 6185175-9 (Version None)
Quarter: 2009Q2

REPORT INFORMATION
  Report Type: 
  Country: None (occurrence: None)
  Receive Date: 20090511
  Receipt Date: 20081215
  Transmission Date: 20091009
  Serious: No
  Sender: FDA-Public Use
  Company Number: US-KINGPHARMUSA00001-K200801409

PATIENT
  Sex: Male

DRUGS (1)
  1. CORTISPORIN OINTMENT [Suspect]
     Dosage: UNK
     Route: 061
     Dates: start: 20030101

REACTIONS (1)
  - DERMATITIS BULLOUS [None]
